FAERS Safety Report 9826978 (Version 2)
Quarter: 2014Q1

REPORT INFORMATION
  Report Type: Spontaneous
  Country: US (occurrence: US)
  Receive Date: 20140117
  Receipt Date: 20140314
  Transmission Date: 20141002
  Serious: Yes (Hospitalization)
  Sender: FDA-Public Use
  Company Number: US-INCYTE CORPORATION-2014IN000083

PATIENT
  Age: 68 Year
  Sex: Male
  Weight: 78.91 kg

DRUGS (2)
  1. JAKAFI [Suspect]
     Indication: METAPLASIA
     Dosage: 10 MG, BID
     Route: 048
     Dates: start: 20120220
  2. JAKAFI [Suspect]
     Dosage: 10 MG, BID
     Route: 048
     Dates: start: 20130723

REACTIONS (2)
  - Hospitalisation [Unknown]
  - Abdominal pain upper [Unknown]
